FAERS Safety Report 17993248 (Version 1)
Quarter: 2020Q3

REPORT INFORMATION
  Report Type: Spontaneous
  Country: US (occurrence: US)
  Receive Date: 20200708
  Receipt Date: 20200708
  Transmission Date: 20201103
  Serious: Yes (Death, Hospitalization, Other)
  Sender: FDA-Public Use
  Company Number: US-AUROBINDO-AUR-APL-2020-032220

PATIENT
  Age: 59 Year
  Sex: Male

DRUGS (6)
  1. AMPHETAMINE SULFATE. [Suspect]
     Active Substance: AMPHETAMINE SULFATE
     Indication: PRODUCT USED FOR UNKNOWN INDICATION
     Dosage: UNK
     Route: 048
  2. AMPHETAMINE SULFATE. [Suspect]
     Active Substance: AMPHETAMINE SULFATE
     Dosage: UNK
  3. AMPHETAMINE SULFATE. [Suspect]
     Active Substance: AMPHETAMINE SULFATE
     Dosage: UNK
     Route: 023
  4. HYPOCHLORITE [Suspect]
     Active Substance: SODIUM HYPOCHLORITE
     Dosage: UNK
  5. HYPOCHLORITE [Suspect]
     Active Substance: SODIUM HYPOCHLORITE
     Indication: PRODUCT USED FOR UNKNOWN INDICATION
     Dosage: UNK
     Route: 048
  6. HYPOCHLORITE [Suspect]
     Active Substance: SODIUM HYPOCHLORITE
     Dosage: UNK
     Route: 023

REACTIONS (1)
  - Completed suicide [Fatal]
